FAERS Safety Report 7339614-8 (Version None)
Quarter: 2011Q1

REPORT INFORMATION
  Report Type: 
  Country: None (occurrence: None)
  Receive Date: 20110308
  Receipt Date: 20110307
  Transmission Date: 20110831
  Serious: Yes (Death)
  Sender: FDA-Public Use
  Company Number: ES-MERCK-1102ESP00032

PATIENT
  Age: 80 Year
  Sex: Male

DRUGS (3)
  1. INVANZ [Suspect]
     Indication: PNEUMONIA
     Route: 042
     Dates: start: 20100602, end: 20100615
  2. LEVOFLOXACIN [Concomitant]
     Indication: PNEUMONIA
     Route: 042
     Dates: start: 20100601, end: 20100602
  3. INVANZ [Suspect]
     Indication: TREATMENT FAILURE
     Route: 042
     Dates: start: 20100602, end: 20100615

REACTIONS (2)
  - NO THERAPEUTIC RESPONSE [None]
  - PRE-EXISTING DISEASE [None]
